FAERS Safety Report 11078602 (Version 1)
Quarter: 2015Q2

REPORT INFORMATION
  Report Type: Spontaneous
  Country: RU (occurrence: None)
  Receive Date: 20150428
  Receipt Date: 20150428
  Transmission Date: 20150821
  Serious: Yes (Other)
  Sender: FDA-Public Use
  Company Number: RU2015GSK055184

PATIENT
  Age: 28 Year
  Sex: Female

DRUGS (6)
  1. COMBIVIR [Suspect]
     Active Substance: LAMIVUDINE\ZIDOVUDINE
     Indication: PROPHYLAXIS
     Dates: start: 2007, end: 2007
  2. PREZISTA [Suspect]
     Active Substance: DARUNAVIR ETHANOLATE
     Indication: HIV INFECTION
     Dates: start: 20150306
  3. COMBIVIR [Suspect]
     Active Substance: LAMIVUDINE\ZIDOVUDINE
     Indication: VERTICAL INFECTION TRANSMISSION
     Dates: start: 2007, end: 2007
  4. RITONAVIR. [Suspect]
     Active Substance: RITONAVIR
     Indication: HIV INFECTION
     Dates: start: 20150306
  5. STOCRIN (EFAVIRENZ) [Suspect]
     Active Substance: EFAVIRENZ
     Indication: HIV INFECTION
     Dates: start: 201403
  6. KIVEXA [Suspect]
     Active Substance: ABACAVIR SULFATE\LAMIVUDINE
     Indication: HIV INFECTION
     Dates: start: 2014

REACTIONS (16)
  - Tuberculosis [None]
  - Dry skin [None]
  - Rash erythematous [None]
  - Abortion induced [None]
  - Maternal exposure during pregnancy [None]
  - Nasal congestion [None]
  - Pruritus [None]
  - Haemoglobin decreased [None]
  - Burning sensation [None]
  - Alopecia [None]
  - Nightmare [None]
  - Pancreatic disorder [None]
  - Hair colour changes [None]
  - Abdominal pain [None]
  - Lymphadenopathy [None]
  - Dermatitis allergic [None]

NARRATIVE: CASE EVENT DATE: 2007
